FAERS Safety Report 5395016-5 (Version None)
Quarter: 2007Q3

REPORT INFORMATION
  Report Type: 
  Country: None (occurrence: None)
  Receive Date: 20070724
  Receipt Date: 20070718
  Transmission Date: 20080115
  Serious: Yes (Hospitalization)
  Sender: FDA-Public Use
  Company Number: ES-JNJFOC-20070703859

PATIENT
  Age: 98 Year
  Sex: Female

DRUGS (6)
  1. TAVANIC [Suspect]
     Indication: URINARY TRACT INFECTION
     Route: 048
     Dates: start: 20070518, end: 20070521
  2. AMERIDE [Concomitant]
     Indication: ESSENTIAL HYPERTENSION
     Route: 048
  3. FUROSEMIDE [Concomitant]
     Indication: RENAL FAILURE CHRONIC
     Route: 048
  4. LACTULOSE [Concomitant]
     Indication: CONSTIPATION
     Route: 048
  5. METAMIZOLE MAGNESIUM [Concomitant]
     Indication: PAIN
     Route: 048
  6. BOI K [Concomitant]
     Indication: PROPHYLAXIS
     Route: 048

REACTIONS (2)
  - DEHYDRATION [None]
  - VOMITING [None]
